FAERS Safety Report 22816368 (Version 3)
Quarter: 2024Q3

REPORT INFORMATION
  Report Type: Report from Study
  Country: MX (occurrence: MX)
  Receive Date: 20230811
  Receipt Date: 20240807
  Transmission Date: 20241016
  Serious: Yes (Other)
  Sender: NOVARTIS
  Company Number: MX-002147023-NVSC2023MX135651

PATIENT
  Age: 41 Year
  Sex: Female
  Weight: 91 kg

DRUGS (3)
  1. TASIGNA [Suspect]
     Active Substance: NILOTINIB
     Indication: Chronic myeloid leukaemia
     Dosage: UNK, BID
     Route: 048
  2. TASIGNA [Suspect]
     Active Substance: NILOTINIB
     Dosage: 4 DOSAGE FORM, QD, (4 DF (200 MG))
     Route: 048
  3. IMATINIB [Suspect]
     Active Substance: IMATINIB
     Indication: Product used for unknown indication
     Dosage: UNK
     Route: 065

REACTIONS (32)
  - Cachexia [Recovering/Resolving]
  - Chronic myeloid leukaemia recurrent [Unknown]
  - White blood cell count increased [Unknown]
  - Leukaemia recurrent [Unknown]
  - Depressed mood [Unknown]
  - Decreased appetite [Recovering/Resolving]
  - Weight fluctuation [Not Recovered/Not Resolved]
  - Weight decreased [Unknown]
  - Depression [Unknown]
  - Anxiety [Unknown]
  - Influenza [Unknown]
  - Fatigue [Unknown]
  - Weight increased [Unknown]
  - Feeling abnormal [Unknown]
  - Spleen disorder [Unknown]
  - Basophilia [Unknown]
  - General physical health deterioration [Not Recovered/Not Resolved]
  - Discomfort [Unknown]
  - Malaise [Unknown]
  - Abdominal distension [Unknown]
  - Nausea [Recovering/Resolving]
  - Abdominal pain [Unknown]
  - Pain [Unknown]
  - Abdominal pain upper [Unknown]
  - Thirst [Unknown]
  - Seborrhoea [Unknown]
  - Hunger [Unknown]
  - Ligament sprain [Unknown]
  - Polymerase chain reaction positive [Not Recovered/Not Resolved]
  - Feeling of despair [Unknown]
  - Product supply issue [Unknown]
  - Off label use [Unknown]

NARRATIVE: CASE EVENT DATE: 20240401
